FAERS Safety Report 25796812 (Version 1)
Quarter: 2025Q3

REPORT INFORMATION
  Report Type: Spontaneous
  Country: EU (occurrence: EU)
  Receive Date: 20250912
  Receipt Date: 20250912
  Transmission Date: 20251021
  Serious: Yes (Hospitalization, Other)
  Sender: CHEPLAPHARM
  Company Number: None

PATIENT
  Sex: Female

DRUGS (1)
  1. QUETIAPINE [Suspect]
     Active Substance: QUETIAPINE
     Indication: Mental disorder
     Route: 048
     Dates: start: 20250625

REACTIONS (5)
  - Somnolence [Recovered/Resolved]
  - Accidental overdose [Recovered/Resolved]
  - Depressed level of consciousness [Recovered/Resolved]
  - Vertigo [Recovered/Resolved]
  - Apraxia [Unknown]

NARRATIVE: CASE EVENT DATE: 20250626
